FAERS Safety Report 4839012-2 (Version None)
Quarter: 2005Q4

REPORT INFORMATION
  Report Type: 
  Country: None (occurrence: None)
  Receive Date: 20051129
  Receipt Date: 20050920
  Transmission Date: 20060501
  Serious: Yes (Hospitalization)
  Sender: FDA-Public Use
  Company Number: GBWYE992420SEP05

PATIENT
  Sex: Female

DRUGS (7)
  1. ENBREL [Suspect]
     Indication: RHEUMATOID ARTHRITIS
     Dosage: UNKNOWN
     Route: 058
     Dates: start: 20040623, end: 20051001
  2. METHOTREXATE [Concomitant]
     Route: 065
     Dates: start: 19960101
  3. PREDNISOLONE [Concomitant]
     Route: 065
     Dates: start: 20010101
  4. SIMVASTATIN [Concomitant]
     Route: 065
  5. ATENOLOL [Concomitant]
     Route: 065
     Dates: start: 20010101
  6. FELODIPINE [Concomitant]
     Route: 065
     Dates: start: 20010101
  7. WARFARIN SODIUM [Concomitant]
     Route: 065
     Dates: start: 20041101

REACTIONS (1)
  - BREAST CANCER STAGE III [None]
